FAERS Safety Report 7360090-3 (Version None)
Quarter: 2011Q1

REPORT INFORMATION
  Report Type: 
  Country: None (occurrence: None)
  Receive Date: 20110318
  Receipt Date: 20110308
  Transmission Date: 20110831
  Serious: Yes (Other)
  Sender: FDA-Public Use
  Company Number: AT-BIOGENIDEC-2010BI043045

PATIENT
  Age: 34 Year
  Sex: Female

DRUGS (6)
  1. VALTREX [Concomitant]
  2. RIVOTRIL [Concomitant]
  3. TARDYFERON [Concomitant]
  4. TYSABRI [Suspect]
     Indication: MULTIPLE SCLEROSIS
     Route: 042
     Dates: start: 20080726, end: 20101109
  5. TYSABRI [Suspect]
     Route: 042
     Dates: start: 20110111
  6. EFFECTIN [Concomitant]
     Indication: DEPRESSION

REACTIONS (1)
  - ABORTION SPONTANEOUS [None]
